FAERS Safety Report 12610757 (Version 1)
Quarter: 2016Q3

REPORT INFORMATION
  Report Type: Spontaneous
  Country: US (occurrence: US)
  Receive Date: 20160801
  Receipt Date: 20160801
  Transmission Date: 20161109
  Serious: Yes (Hospitalization)
  Sender: FDA-Public Use
  Company Number: US-ROCHE-1777713

PATIENT
  Age: 66 Year
  Sex: Female

DRUGS (8)
  1. ZELBORAF [Suspect]
     Active Substance: VEMURAFENIB
     Indication: MALIGNANT MELANOMA
     Dosage: AT 2 AM AND 2 PM
     Route: 048
  2. TYLENOL [Concomitant]
     Active Substance: ACETAMINOPHEN
  3. ASPIRIN. [Concomitant]
     Active Substance: ASPIRIN
  4. LEVOTHYROXINE. [Concomitant]
     Active Substance: LEVOTHYROXINE
  5. ONDANSETRON [Concomitant]
     Active Substance: ONDANSETRON
  6. COTELLIC [Suspect]
     Active Substance: COBIMETINIB
     Indication: MALIGNANT MELANOMA
     Dosage: TAKE DAILY FOR 21 DAYS OF A 28 DAY CYCLE?AT AROUND 8 - 9 AM
     Route: 048
  7. MOTRIN [Concomitant]
     Active Substance: IBUPROFEN
  8. ZELBORAF [Suspect]
     Active Substance: VEMURAFENIB
     Dosage: 4 TABLETS EVERY 12 HOURS
     Route: 048

REACTIONS (10)
  - Nausea [Unknown]
  - Weight decreased [Unknown]
  - Decreased appetite [Unknown]
  - Rash pustular [Unknown]
  - Loss of consciousness [Unknown]
  - Rash [Unknown]
  - Diarrhoea [Recovering/Resolving]
  - Dysgeusia [Unknown]
  - Dermatitis acneiform [Unknown]
  - Pruritus [Unknown]
